FAERS Safety Report 19667208 (Version 1)
Quarter: 2021Q3

REPORT INFORMATION
  Report Type: Spontaneous
  Country: CA (occurrence: CA)
  Receive Date: 20210806
  Receipt Date: 20210806
  Transmission Date: 20211014
  Serious: Yes (Hospitalization, Other)
  Sender: FDA-Public Use
  Company Number: CA-VIIV HEALTHCARE LIMITED-CA2021AMR164722

PATIENT
  Sex: Male

DRUGS (1)
  1. TRIUMEQ [Suspect]
     Active Substance: ABACAVIR SULFATE\DOLUTEGRAVIR SODIUM\LAMIVUDINE
     Indication: PRODUCT USED FOR UNKNOWN INDICATION
     Dosage: UNK

REACTIONS (6)
  - Therapy interrupted [Unknown]
  - Cerebral toxoplasmosis [Unknown]
  - Virologic failure [Unknown]
  - Viral mutation identified [Unknown]
  - Acquired immunodeficiency syndrome [Unknown]
  - Social problem [Unknown]

NARRATIVE: CASE EVENT DATE: 2019
